FAERS Safety Report 19571232 (Version 1)
Quarter: 2021Q3

REPORT INFORMATION
  Report Type: Spontaneous
  Country: CN (occurrence: CN)
  Receive Date: 20210716
  Receipt Date: 20210716
  Transmission Date: 20211014
  Serious: Yes (Hospitalization)
  Sender: FDA-Public Use
  Company Number: CN-ASTRAZENECA-2021A613825

PATIENT
  Age: 29093 Day
  Sex: Male

DRUGS (3)
  1. FUDOSTEINE [Concomitant]
     Active Substance: FUDOSTEINE
     Indication: PRODUCTIVE COUGH
     Route: 048
     Dates: start: 20210610, end: 20210624
  2. BUDESONIDE, GLYCOPYRRONIUM BROMIDE AND FORMOTEROL FUMARATE [Suspect]
     Active Substance: BUDESONIDE\FORMOTEROL\GLYCOPYRRONIUM
     Indication: EMPHYSEMA
     Route: 055
     Dates: start: 20210604, end: 20210624
  3. KETOTIFEN FUMARATE. [Concomitant]
     Active Substance: KETOTIFEN FUMARATE
     Indication: COUGH
     Route: 048
     Dates: start: 20210610, end: 20210624

REACTIONS (2)
  - Pneumonia [Recovering/Resolving]
  - Body temperature increased [Recovering/Resolving]

NARRATIVE: CASE EVENT DATE: 20210624
